FAERS Safety Report 14657144 (Version 1)
Quarter: 2018Q1

REPORT INFORMATION
  Report Type: Spontaneous
  Country: FR (occurrence: FR)
  Receive Date: 20180319
  Receipt Date: 20180319
  Transmission Date: 20180509
  Serious: Yes (Other)
  Sender: FDA-Public Use
  Company Number: FR-PFIZER INC-2018111031

PATIENT
  Age: 62 Year
  Sex: Female

DRUGS (5)
  1. BOSULIF [Suspect]
     Active Substance: BOSUTINIB MONOHYDRATE
     Indication: CHRONIC MYELOID LEUKAEMIA
     Dosage: UNK
     Route: 048
     Dates: start: 20160811
  2. HYDREA [Concomitant]
     Active Substance: HYDROXYUREA
     Indication: CHRONIC MYELOID LEUKAEMIA
     Dosage: 1 DF, ALTERNATE DAY
     Route: 048
     Dates: start: 20170619, end: 20170619
  3. XYZALL [Concomitant]
     Active Substance: LEVOCETIRIZINE DIHYDROCHLORIDE
     Indication: RHINITIS ALLERGIC
     Dosage: UNK
     Route: 048
     Dates: start: 20170323
  4. ESOMEPRAZOLE [Concomitant]
     Active Substance: ESOMEPRAZOLE
     Indication: ABDOMINAL DISCOMFORT
     Dosage: UNK
     Route: 048
     Dates: start: 20170101
  5. PINAVERIUM BROMIDE [Concomitant]
     Active Substance: PINAVERIUM BROMIDE
     Indication: ABDOMINAL DISCOMFORT
     Dosage: UNK
     Route: 048
     Dates: start: 20170101

REACTIONS (1)
  - Autoimmune hypothyroidism [Not Recovered/Not Resolved]

NARRATIVE: CASE EVENT DATE: 20170401
